FAERS Safety Report 17859685 (Version 1)
Quarter: 2020Q2

REPORT INFORMATION
  Report Type: Spontaneous
  Country: US (occurrence: US)
  Receive Date: 20200604
  Receipt Date: 20200604
  Transmission Date: 20200714
  Serious: No
  Sender: FDA-Public Use
  Company Number: US-PFIZER INC-2020217731

PATIENT
  Age: 53 Year
  Sex: Male

DRUGS (1)
  1. IBUPROFEN. [Suspect]
     Active Substance: IBUPROFEN
     Indication: PAIN
     Dosage: UNK, 4X/DAY (TAKES 25 PILLS EVERY 6 HOURS SOMETIMES, LIKE 5,000MG)

REACTIONS (2)
  - Drug ineffective [Unknown]
  - Intentional overdose [Unknown]
